FAERS Safety Report 5332276-0 (Version None)
Quarter: 2007Q2

REPORT INFORMATION
  Report Type: 
  Country: None (occurrence: None)
  Receive Date: 20070306
  Receipt Date: 20060906
  Transmission Date: 20071010
  Serious: Yes (Hospitalization)
  Sender: FDA-Public Use
  Company Number: A03200606014

PATIENT
  Age: 56 Year
  Sex: Male
  Weight: 92.7606 kg

DRUGS (14)
  1. PLAVIX [Suspect]
     Indication: MYOCARDIAL INFARCTION
     Dosage: ORAL
     Route: 048
     Dates: start: 20030526
  2. PLAVIX [Suspect]
     Indication: STENT PLACEMENT
     Dosage: ORAL
     Route: 048
     Dates: start: 20030526
  3. VIOXX - ROFECOXIB - UNKNOWN -  25 MG [Suspect]
     Indication: OSTEOARTHRITIS
     Dosage: 25 MG BID - ORAL
     Route: 048
     Dates: start: 19990701, end: 20030601
  4. LISINOPRIL [Suspect]
     Indication: HYPERTENSION
     Dosage: ORAL
     Route: 048
     Dates: start: 20030526
  5. METOPROLOL - TABLET - UNIT DOSE : UNKNOWN [Suspect]
     Dosage: ORAL
     Route: 048
     Dates: start: 20030526
  6. NIASPAN [Suspect]
     Indication: BLOOD CHOLESTEROL INCREASED
     Dosage: ORAL
     Route: 048
     Dates: start: 20030526
  7. NIASPAN [Suspect]
     Indication: BLOOD TRIGLYCERIDES INCREASED
     Dosage: ORAL
     Route: 048
     Dates: start: 20030526
  8. TYLENOL [Suspect]
     Dosage: ORAL
     Route: 048
     Dates: start: 20060526
  9. NITROQUICK - GLYCERYL TRINITRATE - UNIT DOSE : UNKNOWN [Suspect]
     Dosage: ORAL
  10. ATORVASTATIN [Concomitant]
  11. TRANDOLAPRIL [Concomitant]
  12. ACETYLSALICYLIC ACID SRT [Concomitant]
  13. IRON [Concomitant]
  14. HEPARIN - UNKNOWN - UNIT DOSE UNKNOWN [Suspect]
     Dates: start: 20030526

REACTIONS (1)
  - GASTROINTESTINAL ULCER HAEMORRHAGE [None]
